FAERS Safety Report 21293060 (Version 2)
Quarter: 2022Q4

REPORT INFORMATION
  Report Type: Report from Study
  Country: US (occurrence: US)
  Receive Date: 20220905
  Receipt Date: 20221003
  Transmission Date: 20230112
  Serious: Yes (Hospitalization)
  Sender: FDA-Public Use
  Company Number: US-SERVIER-S22008891

PATIENT

DRUGS (4)
  1. PEGASPARGASE [Suspect]
     Active Substance: PEGASPARGASE
     Indication: B precursor type acute leukaemia
     Dosage: 2900 [IU], ONE DOSE ON D2
     Route: 042
     Dates: start: 20220721, end: 20220721
  2. RITUXIMAB [Suspect]
     Active Substance: RITUXIMAB
     Indication: B precursor type acute leukaemia
     Dosage: 375 MG/M2, ON D1, D8; TOTAL DOSE 500 MG
     Route: 042
     Dates: start: 20220720, end: 20220720
  3. METHOTREXATE [Suspect]
     Active Substance: METHOTREXATE
     Indication: B precursor type acute leukaemia
     Dosage: ESCALATING DOSE STARTING WITH 100 MG/M2, ON D1,D11, D21, D31, D41; TOTAL DOSE 160 MG
     Route: 042
     Dates: start: 20220720, end: 20220803
  4. VINCRISTINE SULFATE [Suspect]
     Active Substance: VINCRISTINE SULFATE
     Indication: B precursor type acute leukaemia
     Dosage: 1.5 MG/M2, MAX 2 MG/DOSE; ON D1, D11, D21, D31, D41; TOTAL DOSE 4 MG
     Route: 042
     Dates: start: 20220720, end: 20220803

REACTIONS (1)
  - Sepsis [Recovered/Resolved]

NARRATIVE: CASE EVENT DATE: 20220808
